FAERS Safety Report 10516997 (Version 1)
Quarter: 2014Q4

REPORT INFORMATION
  Report Type: Spontaneous
  Country: IT (occurrence: IT)
  Receive Date: 20141014
  Receipt Date: 20141014
  Transmission Date: 20150528
  Serious: Yes (Hospitalization)
  Sender: FDA-Public Use
  Company Number: IT-ASTELLAS-2014EU013446

PATIENT
  Age: 24 Year
  Sex: Male

DRUGS (3)
  1. ALEMTUZUMAB [Concomitant]
     Active Substance: ALEMTUZUMAB
     Indication: IMMUNOSUPPRESSION
     Dosage: 0.3 MG/KG, UNKNOWN FREQ.
     Route: 065
  2. TACROLIMUS. [Suspect]
     Active Substance: TACROLIMUS
     Indication: IMMUNOSUPPRESSION
     Dosage: UNK UNK, UNKNOWN FREQ.
     Route: 065
  3. PREDNISONE. [Concomitant]
     Active Substance: PREDNISONE
     Indication: IMMUNOSUPPRESSION
     Route: 065

REACTIONS (1)
  - Autoimmune haemolytic anaemia [Recovered/Resolved]
